FAERS Safety Report 10250333 (Version 1)
Quarter: 2014Q2

REPORT INFORMATION
  Report Type: Spontaneous
  Country: US (occurrence: None)
  Receive Date: 20140618
  Receipt Date: 20140618
  Transmission Date: 20141212
  Serious: Yes (Other)
  Sender: FDA-Public Use
  Company Number: None

PATIENT
  Age: 23 Year
  Sex: Female
  Weight: 64.41 kg

DRUGS (3)
  1. MIRENA IUD [Suspect]
     Indication: CONTRACEPTION
     Dosage: IUD INSERTED BY PHYSICIAN ONCE EVERY 5 YEARS
     Route: 067
     Dates: start: 20131107, end: 20140611
  2. MIRENA IUD [Suspect]
     Indication: PROPHYLAXIS
     Dosage: IUD INSERTED BY PHYSICIAN ONCE EVERY 5 YEARS
     Route: 067
     Dates: start: 20131107, end: 20140611
  3. MIRENA IUD [Suspect]
     Indication: OVARIAN CYST
     Dosage: IUD INSERTED BY PHYSICIAN ONCE EVERY 5 YEARS
     Route: 067
     Dates: start: 20131107, end: 20140611

REACTIONS (19)
  - Headache [None]
  - Muscle spasms [None]
  - Acne [None]
  - Alopecia [None]
  - Mood altered [None]
  - Anxiety [None]
  - Depression [None]
  - Abdominal distension [None]
  - Abdominal pain upper [None]
  - Weight increased [None]
  - Dry eye [None]
  - Fatigue [None]
  - Insomnia [None]
  - Restlessness [None]
  - Hypoaesthesia [None]
  - Abdominal pain upper [None]
  - Mental disorder [None]
  - Emotional disorder [None]
  - Seborrhoea [None]
